FAERS Safety Report 9287920 (Version 1)
Quarter: 2013Q2

REPORT INFORMATION
  Report Type: Spontaneous
  Country: US (occurrence: US)
  Receive Date: 20130514
  Receipt Date: 20130514
  Transmission Date: 20140414
  Serious: No
  Sender: FDA-Public Use
  Company Number: US-TEVA-404534USA

PATIENT
  Age: 29 Year
  Sex: Female
  Weight: 82.63 kg

DRUGS (7)
  1. PROAIR HFA [Suspect]
     Indication: ASTHMA
     Dosage: 2 PUFFS Q 6 HRS
     Route: 055
  2. PROAIR HFA [Suspect]
     Indication: BRONCHITIS
  3. ZYRTEC [Concomitant]
     Indication: HYPERSENSITIVITY
     Dosage: 10 MILLIGRAM DAILY;
     Route: 048
  4. B12 INJECTION [Concomitant]
     Indication: SUPPLEMENTATION THERAPY
  5. IBUPROFEN [Concomitant]
     Indication: MIGRAINE
  6. UNSPECIFIED INGREDIENT [Concomitant]
     Indication: ASTHMA
  7. UNSPECIFIED INGREDIENT [Concomitant]
     Indication: BRONCHITIS

REACTIONS (3)
  - Chest discomfort [Not Recovered/Not Resolved]
  - Dyspnoea [Not Recovered/Not Resolved]
  - Inappropriate schedule of drug administration [Unknown]
